FAERS Safety Report 5291745-2 (Version None)
Quarter: 2007Q2

REPORT INFORMATION
  Report Type: 
  Country: None (occurrence: None)
  Receive Date: 20070410
  Receipt Date: 20070402
  Transmission Date: 20071010
  Serious: Yes (Hospitalization, Other)
  Sender: FDA-Public Use
  Company Number: JP-BRISTOL-MYERS SQUIBB COMPANY-13502687

PATIENT
  Age: 40 Year
  Sex: Male

DRUGS (5)
  1. EFAVIRENZ [Suspect]
     Indication: HIV INFECTION
     Route: 048
     Dates: start: 20060727, end: 20060830
  2. TRUVADA [Suspect]
     Indication: HIV INFECTION
     Route: 048
     Dates: start: 20060727, end: 20060830
  3. PYRIMETHAMINE TAB [Suspect]
     Indication: TOXOPLASMOSIS
     Dosage: 200 MG 19/5/06, 100 MG 20/5/06 TO 18/8/06, 75 MG 06/6/06 TO 18/8/06, 25 MG 19/8/06 TO 30/8/06
     Route: 048
     Dates: start: 20060819, end: 20060830
  4. SULFADIAZINE [Suspect]
     Indication: TOXOPLASMOSIS
     Dosage: 1.5 GM QID 19/5/06 - 27/5/06, 1 GM QID 06/6/06 - 18/8/06, 0.5GM QID 19/8/06 - 30/8/06
     Route: 048
     Dates: start: 20060519, end: 20060605
  5. RIFAMPICIN [Concomitant]

REACTIONS (3)
  - GASTROENTERITIS STAPHYLOCOCCAL [None]
  - RENAL FAILURE ACUTE [None]
  - STAPHYLOCOCCAL SEPSIS [None]
